FAERS Safety Report 6368433-4 (Version None)
Quarter: 2009Q3

REPORT INFORMATION
  Report Type: 
  Country: None (occurrence: None)
  Receive Date: 20090922
  Receipt Date: 20090916
  Transmission Date: 20100115
  Serious: Yes (Hospitalization)
  Sender: FDA-Public Use
  Company Number: IT-AVENTIS-200915526EU

PATIENT
  Age: 62 Year
  Sex: Male

DRUGS (2)
  1. CLEXANE T [Suspect]
     Route: 058
     Dates: start: 20090813, end: 20090909
  2. DINTOINA [Suspect]
     Indication: CONVULSION PROPHYLAXIS
     Route: 048
     Dates: start: 20090814, end: 20090905

REACTIONS (2)
  - DERMATITIS EXFOLIATIVE [None]
  - EOSINOPHILIA [None]
